FAERS Safety Report 22790434 (Version 4)
Quarter: 2024Q3

REPORT INFORMATION
  Report Type: Spontaneous
  Country: FR (occurrence: FR)
  Receive Date: 20230805
  Receipt Date: 20240903
  Transmission Date: 20241016
  Serious: Yes (Hospitalization)
  Sender: ACCORD
  Company Number: None

PATIENT
  Age: 59 Year
  Sex: Female

DRUGS (17)
  1. ONDANSETRON [Suspect]
     Active Substance: ONDANSETRON
     Indication: Antiemetic supportive care
     Dosage: DOSAGE NOT GIVEN
     Dates: start: 20230523, end: 20230524
  2. PANTOPRAZOLE [Suspect]
     Active Substance: PANTOPRAZOLE
     Indication: Gastritis prophylaxis
     Dosage: DOSAGE NOT COMMUNICATED
     Dates: start: 20230522, end: 20230530
  3. SEVOFLURANE [Suspect]
     Active Substance: SEVOFLURANE
     Indication: Anaesthesia
     Dosage: DOSAGE NOT COMMUNICATED
     Dates: start: 20230522, end: 20230522
  4. ROPIVACAINE [Suspect]
     Active Substance: ROPIVACAINE
     Indication: Anaesthesia
     Dosage: DOSAGE NOT COMMUNICATED
     Dates: start: 20230522, end: 20230522
  5. ACUPAN [Suspect]
     Active Substance: NEFOPAM HYDROCHLORIDE
     Indication: Pain prophylaxis
     Dosage: DOSAGE NOT COMMUNICATED
     Dates: start: 20230522, end: 20230523
  6. TRAMADOL HYDROCHLORIDE [Suspect]
     Active Substance: TRAMADOL HYDROCHLORIDE
     Indication: Pain prophylaxis
     Dosage: STRENGTH: 100 MG/2 ML
     Dates: start: 20230522, end: 20230522
  7. PERFALGAN [Suspect]
     Active Substance: ACETAMINOPHEN
     Indication: Antibiotic prophylaxis
     Dosage: STRENGTH: 10 MG/ML
     Dates: start: 20230522, end: 20230525
  8. DEXAMETHASONE [Suspect]
     Active Substance: DEXAMETHASONE
     Indication: Prophylaxis of nausea and vomiting
     Dosage: DOSAGE NOT COMMUNICATED
     Dates: start: 20230522, end: 20230522
  9. PHLOROGLUCINOL [Suspect]
     Active Substance: PHLOROGLUCINOL
     Indication: Abdominal pain
     Dosage: DOSAGE NOT COMMUNICATED
     Dates: start: 20230523, end: 20230525
  10. NICARDIPINE [Suspect]
     Active Substance: NICARDIPINE
     Indication: Hypertension
     Dosage: DOSAGE NOT COMMUNICATED
     Dates: start: 20230523, end: 20230524
  11. PROPOFOL [Suspect]
     Active Substance: PROPOFOL
     Indication: Anaesthesia
     Dosage: DOSAGE NOT COMMUNICATED
     Dates: start: 20230522, end: 20230522
  12. SUFENTANIL [Suspect]
     Active Substance: SUFENTANIL
     Indication: Anaesthesia
     Dosage: DOSAGE NOT COMMUNICATED
     Dates: start: 20230522, end: 20230522
  13. KETAMINE [Suspect]
     Active Substance: KETAMINE
     Indication: Anaesthesia
     Dosage: DOSAGE NOT COMMUNICATED
     Dates: start: 20230522, end: 20230522
  14. ATRACURIUM [Suspect]
     Active Substance: ATRACURIUM
     Indication: Anaesthesia
     Dosage: DOSAGE NOT COMMUNICATED
     Dates: start: 20230522, end: 20230522
  15. LOVENOX [Suspect]
     Active Substance: ENOXAPARIN SODIUM
     Indication: Thrombosis prophylaxis
     Dosage: DOSAGE NOT COMMUNICATED
     Dates: start: 20230522, end: 20230601
  16. CEFAZOLIN [Suspect]
     Active Substance: CEFAZOLIN
     Indication: Antibiotic prophylaxis
     Dosage: DOSAGE NOT COMMUNICATED
     Dates: start: 20230522, end: 20230522
  17. ULTRAVIST [Suspect]
     Active Substance: IOPROMIDE
     Indication: Imaging procedure
     Dosage: DOSAGE NOT COMMUNICATED, (370 MG IODINE/ML)
     Dates: start: 20230524, end: 20230524

REACTIONS (1)
  - Acute generalised exanthematous pustulosis [Recovered/Resolved]

NARRATIVE: CASE EVENT DATE: 20230525
